FAERS Safety Report 14901324 (Version 4)
Quarter: 2019Q1

REPORT INFORMATION
  Report Type: Spontaneous
  Country: US (occurrence: US)
  Receive Date: 20180516
  Receipt Date: 20190103
  Transmission Date: 20190417
  Serious: Yes (Hospitalization, Other)
  Sender: FDA-Public Use
  Company Number: US-009507513-1805USA006130

PATIENT
  Sex: Female
  Weight: 145 kg

DRUGS (1)
  1. NUVARING [Suspect]
     Active Substance: ETHINYL ESTRADIOL\ETONOGESTREL
     Indication: CONTRACEPTION
     Dosage: 1 DF, UNK
     Route: 067
     Dates: start: 20110523, end: 20140628

REACTIONS (11)
  - Ataxia [Unknown]
  - Infection [Unknown]
  - Chest pain [Recovered/Resolved]
  - Swelling [Unknown]
  - Pain [Unknown]
  - Nasal septum deviation [Unknown]
  - Haemorrhage [Unknown]
  - Pulmonary embolism [Unknown]
  - Pleuritic pain [Recovered/Resolved]
  - Colitis ulcerative [Unknown]
  - Headache [Recovering/Resolving]

NARRATIVE: CASE EVENT DATE: 2014
